FAERS Safety Report 8240413-3 (Version None)
Quarter: 2012Q1

REPORT INFORMATION
  Report Type: 
  Country: None (occurrence: None)
  Receive Date: 20120328
  Receipt Date: 20120326
  Transmission Date: 20120608
  Serious: Yes (Hospitalization)
  Sender: FDA-Public Use
  Company Number: US-PFIZER INC-2012078139

PATIENT
  Sex: Male
  Weight: 97 kg

DRUGS (1)
  1. PROTONIX [Suspect]
     Indication: ABDOMINAL DISCOMFORT
     Dosage: 40 MG, DAILY

REACTIONS (2)
  - LUNG DISORDER [None]
  - POLLAKIURIA [None]
